FAERS Safety Report 10435514 (Version 1)
Quarter: 2014Q3

REPORT INFORMATION
  Report Type: Spontaneous
  Country: US (occurrence: US)
  Receive Date: 20140908
  Receipt Date: 20140908
  Transmission Date: 20150326
  Serious: No
  Sender: FDA-Public Use
  Company Number: US-BIOGENIDEC-2014BI090903

PATIENT
  Age: 79 Year
  Sex: Female

DRUGS (2)
  1. AVONEX [Suspect]
     Active Substance: INTERFERON BETA-1A
     Indication: MULTIPLE SCLEROSIS
     Route: 030
     Dates: start: 20140805
  2. AVONEX [Suspect]
     Active Substance: INTERFERON BETA-1A
     Indication: MULTIPLE SCLEROSIS
     Route: 030
     Dates: start: 20140826

REACTIONS (13)
  - Asthenia [Unknown]
  - Sensory disturbance [Unknown]
  - Pain of skin [Unknown]
  - Feeling abnormal [Unknown]
  - Blood pressure increased [Unknown]
  - Blindness unilateral [Unknown]
  - Neck pain [Unknown]
  - Tremor [Unknown]
  - Altered visual depth perception [Unknown]
  - General symptom [Unknown]
  - Balance disorder [Unknown]
  - Tinnitus [Unknown]
  - Headache [Unknown]

NARRATIVE: CASE EVENT DATE: 201408
